FAERS Safety Report 7651780-3 (Version None)
Quarter: 2011Q3

REPORT INFORMATION
  Report Type: 
  Country: None (occurrence: None)
  Receive Date: 20110802
  Receipt Date: 20110718
  Transmission Date: 20111222
  Serious: Yes (Death, Other)
  Sender: FDA-Public Use
  Company Number: US-WATSON-2011-11801

PATIENT
  Age: 39 Year
  Sex: Female

DRUGS (5)
  1. DOXEPIN HCL [Suspect]
     Indication: PRODUCT USED FOR UNKNOWN INDICATION
     Dosage: UNK
  2. METHADONE HYDROCHLORIDE [Suspect]
     Indication: ROTATOR CUFF SYNDROME
     Dosage: 10 MG, DAILY
  3. DIAZEPAM [Suspect]
     Indication: PRODUCT USED FOR UNKNOWN INDICATION
     Dosage: UNK
  4. HYDROCODONE BITARTRATE/ACETAMINOPHEN [Suspect]
     Indication: ROTATOR CUFF SYNDROME
     Dosage: 5/325 MG 8X/DAY
  5. NORDIAZEPAM [Suspect]
     Indication: PRODUCT USED FOR UNKNOWN INDICATION
     Dosage: UNK

REACTIONS (2)
  - MULTIPLE DRUG OVERDOSE [None]
  - DEPENDENCE [None]
